FAERS Safety Report 23020573 (Version 2)
Quarter: 2023Q4

REPORT INFORMATION
  Report Type: Spontaneous
  Country: PL (occurrence: PL)
  Receive Date: 20231003
  Receipt Date: 20231225
  Transmission Date: 20240109
  Serious: Yes (Life-Threatening, Other)
  Sender: FDA-Public Use
  Company Number: PL-AMGEN-POLSP2023172145

PATIENT
  Age: 64 Year
  Sex: Female
  Weight: 67.5 kg

DRUGS (7)
  1. MVASI [Suspect]
     Active Substance: BEVACIZUMAB-AWWB
     Indication: Colon cancer
     Dosage: 90% OF THE DRUG WAS ADMINISTERED
     Route: 065
     Dates: start: 20220318, end: 20220318
  2. CLEMASTINE [Concomitant]
     Active Substance: CLEMASTINE
     Indication: Colon cancer
     Dosage: 2 MILLIGRAM
     Route: 040
     Dates: start: 20220318, end: 20220318
  3. SODIUM CHLORIDE [Concomitant]
     Active Substance: SODIUM CHLORIDE
     Indication: Colon cancer
     Dosage: 500 MILLILITER
     Route: 040
     Dates: start: 20220317, end: 20220321
  4. FILGRASTIM [Concomitant]
     Active Substance: FILGRASTIM
     Indication: Colon cancer
     Dosage: DOSE: 48 MLN. UNITS
     Route: 058
     Dates: start: 20220317, end: 20220317
  5. ONDANSETRON HYDROCHLORIDE [Concomitant]
     Active Substance: ONDANSETRON HYDROCHLORIDE
     Indication: Prophylaxis
     Dosage: 6 MILLILITER
     Route: 048
     Dates: start: 20220318, end: 20220321
  6. DEXAMETHASONE [Concomitant]
     Active Substance: DEXAMETHASONE
     Indication: Prophylaxis
     Dosage: 8 MILLILITER
     Route: 040
     Dates: start: 20220318, end: 20220321
  7. ENOXAPARIN SODIUM [Concomitant]
     Active Substance: ENOXAPARIN SODIUM
     Indication: Prophylaxis
     Dosage: DOSE: 401; UNIT UNKNOWN
     Route: 058
     Dates: start: 20220317, end: 20220321

REACTIONS (1)
  - Anaphylactic reaction [Recovered/Resolved]

NARRATIVE: CASE EVENT DATE: 20220318
